FAERS Safety Report 25746457 (Version 2)
Quarter: 2025Q3

REPORT INFORMATION
  Report Type: Spontaneous
  Country: BR (occurrence: BR)
  Receive Date: 20250901
  Receipt Date: 20250909
  Transmission Date: 20251021
  Serious: Yes (Other)
  Sender: SANDOZ
  Company Number: BR-SANDOZ-SDZ2023BR019037

PATIENT
  Age: 41 Year
  Sex: Female

DRUGS (10)
  1. ANASTROZOLE [Suspect]
     Active Substance: ANASTROZOLE
     Indication: Breast cancer
     Route: 065
  2. ENALAPRIL [Suspect]
     Active Substance: ENALAPRIL
     Indication: Product used for unknown indication
     Route: 065
  3. ENALAPRIL [Suspect]
     Active Substance: ENALAPRIL
     Indication: Blood pressure abnormal
  4. ESCITALOPRAM [Suspect]
     Active Substance: ESCITALOPRAM OXALATE
     Indication: Product used for unknown indication
     Route: 065
  5. ESCITALOPRAM [Suspect]
     Active Substance: ESCITALOPRAM OXALATE
     Indication: Antidepressant therapy
     Route: 065
  6. KISQALI [Suspect]
     Active Substance: RIBOCICLIB SUCCINATE
     Indication: Breast cancer
     Route: 065
     Dates: start: 2023
  7. QUETIAPINE [Suspect]
     Active Substance: QUETIAPINE
     Indication: Insomnia
     Route: 065
  8. ZOLPIDEM [Suspect]
     Active Substance: ZOLPIDEM TARTRATE
     Indication: Insomnia
     Route: 065
  9. KETOCONAZOLE [Concomitant]
     Active Substance: KETOCONAZOLE
     Indication: Product used for unknown indication
     Route: 065
  10. RIVOTRIL [Concomitant]
     Active Substance: CLONAZEPAM
     Indication: Insomnia
     Route: 065

REACTIONS (27)
  - Breast cancer [Not Recovered/Not Resolved]
  - Skin necrosis [Unknown]
  - Metastases to bone [Unknown]
  - Inflammatory carcinoma of the breast [Unknown]
  - Hypothyroidism [Unknown]
  - Metastases to lung [Unknown]
  - Malignant neoplasm progression [Not Recovered/Not Resolved]
  - Loss of consciousness [Unknown]
  - Breast ulceration [Recovered/Resolved]
  - Pain [Unknown]
  - Breast mass [Unknown]
  - Skin discolouration [Unknown]
  - Pruritus [Unknown]
  - Breast discharge [Recovered/Resolved]
  - Axillary mass [Not Recovered/Not Resolved]
  - Spinal pain [Not Recovered/Not Resolved]
  - Arthralgia [Not Recovered/Not Resolved]
  - Breast discomfort [Unknown]
  - Pain in extremity [Not Recovered/Not Resolved]
  - Erythema [Not Recovered/Not Resolved]
  - Migraine [Unknown]
  - Breast pain [Unknown]
  - Scab [Unknown]
  - Skin hypertrophy [Unknown]
  - Back pain [Not Recovered/Not Resolved]
  - Drug ineffective [Unknown]
  - Product use in unapproved indication [Unknown]

NARRATIVE: CASE EVENT DATE: 20230801
